FAERS Safety Report 10243406 (Version 1)
Quarter: 2014Q2

REPORT INFORMATION
  Report Type: Spontaneous
  Country: NL (occurrence: NL)
  Receive Date: 20140618
  Receipt Date: 20140618
  Transmission Date: 20141212
  Serious: Yes (Hospitalization)
  Sender: FDA-Public Use
  Company Number: NL-AMGEN-NLDSP2012086090

PATIENT
  Age: 65 Year
  Sex: Male

DRUGS (1)
  1. NEULASTA [Suspect]
     Indication: PROPHYLAXIS
     Dosage: 6 MUG, 1X1W
     Route: 058
     Dates: start: 20121010, end: 20130318

REACTIONS (3)
  - Headache [Unknown]
  - Dizziness [Unknown]
  - Malaise [Unknown]
